FAERS Safety Report 7629918-3 (Version None)
Quarter: 2011Q3

REPORT INFORMATION
  Report Type: 
  Country: None (occurrence: None)
  Receive Date: 20110722
  Receipt Date: 20110713
  Transmission Date: 20111222
  Serious: Yes (Hospitalization)
  Sender: FDA-Public Use
  Company Number: IL-SANOFI-AVENTIS-2011SA043468

PATIENT
  Age: 61 Year
  Sex: Male
  Weight: 84.1 kg

DRUGS (10)
  1. AVASTIN [Suspect]
     Dosage: D1 EVERY 3 WEEKS
     Route: 042
     Dates: start: 20110615, end: 20110615
  2. CISPLATIN [Suspect]
     Indication: GASTRIC CANCER
     Route: 042
     Dates: start: 20110414, end: 20110414
  3. XELODA [Suspect]
     Indication: GASTRIC CANCER
     Route: 048
     Dates: start: 20110414
  4. DOCETAXEL [Suspect]
     Indication: GASTRIC CANCER
     Dosage: D1, 8 EVERY 3 WEEKS
     Route: 042
     Dates: start: 20110414, end: 20110414
  5. DOCETAXEL [Suspect]
     Dosage: D1, 8 EVERY 3 WEEKS
     Route: 042
     Dates: start: 20110622, end: 20110622
  6. OMEPRADEX [Concomitant]
     Dates: start: 20100101
  7. AVASTIN [Suspect]
     Indication: GASTRIC CANCER
     Route: 042
     Dates: start: 20110414, end: 20110414
  8. GLUCOMIN [Concomitant]
     Indication: DIABETES MELLITUS
     Dates: start: 20040101
  9. XELODA [Suspect]
     Route: 048
     Dates: start: 20110622, end: 20110628
  10. CISPLATIN [Suspect]
     Dosage: D1, 8 Q3 WEEKS
     Route: 042
     Dates: start: 20110622, end: 20110622

REACTIONS (1)
  - HYPOPHOSPHATAEMIA [None]
